FAERS Safety Report 9518026 (Version 1)
Quarter: 2013Q1

REPORT INFORMATION
  Report Type: Spontaneous
  Country: US (occurrence: None)
  Receive Date: 20130305
  Receipt Date: 20130305
  Transmission Date: 20140127
  Serious: Yes (Hospitalization, Other)
  Sender: FDA-Public Use
  Company Number: 163-21880-12082523

PATIENT
  Age: 65 Year
  Sex: Female

DRUGS (10)
  1. REVLIMID (LENALIDOMIDE) (CAPSULES) [Suspect]
     Indication: CHRONIC LYMPHOCYTIC LEUKAEMIA
     Dosage: 5 MG, 1 IN 1 D, PO
     Route: 048
     Dates: start: 201204, end: 20120726
  2. ACETAMINOPHEN (PARACETAMOL) [Concomitant]
  3. PEGFILGRASTIM (PEGFILGRASTIM) [Concomitant]
  4. NACL (SODIUM CHLORIDE) [Concomitant]
  5. ALLOPURINOL [Concomitant]
  6. PRISTIQ (DESVENLAFAXINSUCCINATE) [Concomitant]
  7. MIRTAZAPINE (MIRTAZAPINE) [Concomitant]
  8. VITAMINS [Concomitant]
  9. OMEPRAZOLE (OMEPRAZOLE) [Concomitant]
  10. PANCRELIPASE (PANCRELIPASE) [Concomitant]

REACTIONS (2)
  - Tumour flare [None]
  - Febrile neutropenia [None]
